FAERS Safety Report 8382716-8 (Version None)
Quarter: 2012Q2

REPORT INFORMATION
  Report Type: 
  Country: None (occurrence: None)
  Receive Date: 20120524
  Receipt Date: 20120327
  Transmission Date: 20120825
  Serious: No
  Sender: FDA-Public Use
  Company Number: US-ALLERGAN-1204340US

PATIENT
  Age: 58 Year
  Sex: Female

DRUGS (2)
  1. REFRESH TEARS [Concomitant]
     Indication: EYE IRRITATION
     Dosage: 2 GTT, PRN
     Route: 047
  2. LASTACAFT [Suspect]
     Indication: MULTIPLE ALLERGIES
     Dosage: 2 GTT, UNK
     Route: 047
     Dates: start: 20120327

REACTIONS (2)
  - ABNORMAL SENSATION IN EYE [None]
  - OCULAR HYPERAEMIA [None]
